FAERS Safety Report 7588639-6 (Version None)
Quarter: 2011Q3

REPORT INFORMATION
  Report Type: 
  Country: None (occurrence: None)
  Receive Date: 20110705
  Receipt Date: 20110411
  Transmission Date: 20111222
  Serious: Yes (Life-Threatening)
  Sender: FDA-Public Use
  Company Number: US-BAYER-2011-013523

PATIENT
  Age: 38 Year
  Sex: Female
  Weight: 102.4 kg

DRUGS (1)
  1. YASMIN [Suspect]
     Indication: PRODUCT USED FOR UNKNOWN INDICATION
     Dates: start: 20030201

REACTIONS (6)
  - CHOLELITHIASIS [None]
  - CHOLECYSTITIS CHRONIC [None]
  - FEAR [None]
  - ANXIETY [None]
  - PAIN [None]
  - ABDOMINAL PAIN [None]
